FAERS Safety Report 4796755-7 (Version None)
Quarter: 2005Q4

REPORT INFORMATION
  Report Type: 
  Country: None (occurrence: None)
  Receive Date: 20051007
  Receipt Date: 20050928
  Transmission Date: 20060501
  Serious: Yes (Other)
  Sender: FDA-Public Use
  Company Number: 2005135291

PATIENT
  Age: 47 Year
  Sex: Male

DRUGS (1)
  1. MEDROL [Suspect]
     Indication: MUSCULOSKELETAL STIFFNESS
     Dosage: 8 MG (8 MG, 1 IN 1 D), ORAL
     Route: 048
     Dates: start: 19930101

REACTIONS (9)
  - ATROPHY [None]
  - CATARACT [None]
  - DRUG DEPENDENCE [None]
  - FEELING ABNORMAL [None]
  - LIBIDO DECREASED [None]
  - MICTURITION URGENCY [None]
  - NAIL DISORDER [None]
  - ONYCHOMYCOSIS [None]
  - TOOTH DISORDER [None]
